FAERS Safety Report 24321116 (Version 1)
Quarter: 2024Q3

REPORT INFORMATION
  Report Type: Spontaneous
  Country: US (occurrence: US)
  Receive Date: 20240916
  Receipt Date: 20240916
  Transmission Date: 20241017
  Serious: Yes (Other)
  Sender: Haleon PLC
  Company Number: US-HALEON-2196346

PATIENT
  Age: 59 Year
  Sex: Male

DRUGS (3)
  1. NICOTINE [Suspect]
     Active Substance: NICOTINE
     Indication: Product used for unknown indication
     Dosage: OVER-THE-COUNTER SUGAR-FREE
     Route: 048
  2. MANNITOL [Suspect]
     Active Substance: MANNITOL
     Indication: Product used for unknown indication
     Dosage: OVER-THE-COUNTER SUGAR-FREE
     Route: 048
  3. MALTODEXTRIN [Suspect]
     Active Substance: MALTODEXTRIN
     Indication: Product used for unknown indication
     Dosage: OVER-THE-COUNTER SUGAR-FREE
     Route: 065

REACTIONS (1)
  - Dental caries [Not Recovered/Not Resolved]
